FAERS Safety Report 7495566-1 (Version None)
Quarter: 2011Q2

REPORT INFORMATION
  Report Type: 
  Country: None (occurrence: None)
  Receive Date: 20110523
  Receipt Date: 20110509
  Transmission Date: 20111010
  Serious: Yes (Hospitalization)
  Sender: FDA-Public Use
  Company Number: US-JNJFOC-20110405060

PATIENT
  Age: 33 Year
  Sex: Male
  Weight: 92.08 kg

DRUGS (6)
  1. REMICADE [Suspect]
     Indication: CROHN'S DISEASE
     Route: 042
  2. VESICARE [Concomitant]
  3. ELMIRON [Concomitant]
  4. VIT D [Concomitant]
  5. REMICADE [Suspect]
     Route: 042
  6. AZATHIOPRINE [Concomitant]

REACTIONS (2)
  - SMALL INTESTINAL OBSTRUCTION [None]
  - ADHESION [None]
